FAERS Safety Report 17268153 (Version 1)
Quarter: 2020Q1

REPORT INFORMATION
  Report Type: Spontaneous
  Country: US (occurrence: US)
  Receive Date: 20191221
  Receipt Date: 20191221
  Transmission Date: 20200409
  Serious: Yes (Hospitalization)
  Sender: FDA-Public Use
  Company Number: None

PATIENT
  Age: 50 Year
  Sex: Female
  Weight: 57 kg

DRUGS (3)
  1. LEUCOVORIN CALCIUM. [Suspect]
     Active Substance: LEUCOVORIN CALCIUM
     Dates: end: 20171205
  2. 5-FLUOROURACIL (5-FU) (19893) [Suspect]
     Active Substance: FLUOROURACIL
     Dates: end: 20171205
  3. ELOXATIN [Suspect]
     Active Substance: OXALIPLATIN
     Dates: end: 20171205

REACTIONS (4)
  - Anastomotic stenosis [None]
  - Adhesiolysis [None]
  - Ileostomy [None]
  - Explorative laparotomy [None]

NARRATIVE: CASE EVENT DATE: 20180427
